FAERS Safety Report 14680987 (Version 3)
Quarter: 2018Q3

REPORT INFORMATION
  Report Type: Spontaneous
  Country: US (occurrence: US)
  Receive Date: 20180326
  Receipt Date: 20180817
  Transmission Date: 20181010
  Serious: Yes (Other)
  Sender: FDA-Public Use
  Company Number: US-BAYER-2018-058045

PATIENT
  Age: 27 Year
  Sex: Female
  Weight: 97.05 kg

DRUGS (1)
  1. MIRENA [Suspect]
     Active Substance: LEVONORGESTREL
     Indication: CONTRACEPTION
     Dosage: 20 MCG/24HR, CONT
     Route: 015
     Dates: start: 20161019, end: 20180321

REACTIONS (7)
  - Genital haemorrhage [None]
  - Vulvovaginal pain [None]
  - Cervical dysplasia [None]
  - Pelvic pain [None]
  - Vaginal haemorrhage [None]
  - Device expulsion [None]
  - Weight loss poor [None]

NARRATIVE: CASE EVENT DATE: 2017
